FAERS Safety Report 7476881-4 (Version None)
Quarter: 2011Q2

REPORT INFORMATION
  Report Type: 
  Country: None (occurrence: None)
  Receive Date: 20110512
  Receipt Date: 20090518
  Transmission Date: 20111010
  Serious: Yes (Hospitalization, Other)
  Sender: FDA-Public Use
  Company Number: US-BAYER-200920909NA

PATIENT
  Age: 69 Year
  Sex: Male
  Weight: 65.306 kg

DRUGS (11)
  1. TRASYLOL [Suspect]
     Indication: CORONARY ARTERY BYPASS
     Dosage: 150ML LOADING DOSE FOLLOWED BY 25 ML / HOUR DRIP
     Route: 042
     Dates: start: 20060509, end: 20060509
  2. ACETYLSALICYLIC ACID SRT [Concomitant]
     Dosage: DAILY
     Route: 048
  3. NORVASC [Concomitant]
     Dosage: 20MG /DAILY
     Route: 048
  4. ADVIL [CHLORPHENAMINE MALEATE,IBUPROFEN,PSEUDOEPHEDRINE HYDROCHLORIDE] [Concomitant]
     Dosage: AS NEEDED
     Route: 048
  5. HEPARIN [Concomitant]
     Dosage: 14,000 UNITS
     Route: 042
  6. NITROGLYCERIN [Concomitant]
     Dosage: DRIP
     Route: 042
  7. VANCOMYCIN [Concomitant]
     Dosage: 200MG
     Route: 042
  8. ANCEF [Concomitant]
     Dosage: 1GRAM
     Route: 042
  9. IBUPROFEN [Concomitant]
     Dosage: AS NEEDED
     Route: 048
  10. IMDUR [Concomitant]
     Dosage: 30MG /DAILY
     Route: 048
  11. ACUFLEX [Concomitant]
     Dosage: 20MG/DAILY
     Route: 048

REACTIONS (10)
  - ANXIETY [None]
  - PAIN [None]
  - ANHEDONIA [None]
  - INJURY [None]
  - DEPRESSION [None]
  - RENAL FAILURE [None]
  - UNEVALUABLE EVENT [None]
  - RENAL IMPAIRMENT [None]
  - EMOTIONAL DISTRESS [None]
  - FEAR [None]
